FAERS Safety Report 5522602-1 (Version None)
Quarter: 2007Q4

REPORT INFORMATION
  Report Type: 
  Country: None (occurrence: None)
  Receive Date: 20071120
  Receipt Date: 20071112
  Transmission Date: 20080405
  Serious: Yes (Other)
  Sender: FDA-Public Use
  Company Number: GB-SHR-GB-2007-043059

PATIENT
  Age: 67 Year
  Sex: Female

DRUGS (5)
  1. FLUDARABINE PHOSPHATE [Suspect]
     Dosage: UNK, CYCLES
  2. CHLORAMBUCIL [Concomitant]
     Dosage: UNK, CYCLES
  3. PREDNISOLONE [Concomitant]
     Dosage: UNK, CYCLES
  4. PREDNISOLONE [Concomitant]
     Dosage: 60 MG, 1X/DAY
  5. PLATELETS [Concomitant]
     Indication: PROPHYLAXIS
     Route: 042

REACTIONS (4)
  - CATARACT [None]
  - OPTIC ATROPHY [None]
  - PANCYTOPENIA [None]
  - RETINITIS VIRAL [None]
